FAERS Safety Report 5103089-X (Version None)
Quarter: 2006Q3

REPORT INFORMATION
  Report Type: 
  Country: None (occurrence: None)
  Receive Date: 20060908
  Receipt Date: 20060830
  Transmission Date: 20061208
  Serious: Yes (Other)
  Sender: FDA-Public Use
  Company Number: 2006105184

PATIENT
  Age: 53 Year
  Sex: Female

DRUGS (2)
  1. NICORETTE [Suspect]
     Indication: SMOKING CESSATION THERAPY
     Dosage: 5MG, TRANSDERMAL
     Route: 062
  2. ETHANOL (ETHANOL) [Suspect]
     Dosage: 4 GLASSES, ORAL
     Route: 048

REACTIONS (6)
  - ABNORMAL BEHAVIOUR [None]
  - ALCOHOL USE [None]
  - FALL [None]
  - FEELING DRUNK [None]
  - LOSS OF CONSCIOUSNESS [None]
  - TREATMENT NONCOMPLIANCE [None]
